FAERS Safety Report 25108832 (Version 1)
Quarter: 2025Q1

REPORT INFORMATION
  Report Type: Other
  Country: US (occurrence: US)
  Receive Date: 20250322
  Receipt Date: 20250322
  Transmission Date: 20250409
  Serious: Yes (Hospitalization, Other)
  Sender: ANI
  Company Number: US-ANIPHARMA-016081

PATIENT
  Age: 76 Year
  Sex: Female

DRUGS (1)
  1. TEMOZOLOMIDE [Suspect]
     Active Substance: TEMOZOLOMIDE
     Indication: Glioblastoma

REACTIONS (3)
  - Deep vein thrombosis [Recovering/Resolving]
  - Haemorrhage intracranial [Recovering/Resolving]
  - Drug ineffective [Unknown]
